FAERS Safety Report 9547148 (Version 2)
Quarter: 2013Q4

REPORT INFORMATION
  Report Type: Spontaneous
  Country: US (occurrence: None)
  Receive Date: 20130919
  Receipt Date: 20131016
  Transmission Date: 20140711
  Serious: Yes (Death)
  Sender: FDA-Public Use
  Company Number: UTC-037759

PATIENT
  Age: 57 Year
  Sex: Female

DRUGS (3)
  1. REMODULIN (2.5 MILLIGRAM/MILLILITERS INJECTION FOR INFUSION) (TREPROSTINIL SODIUM) [Suspect]
     Dosage: 108 UG/KG (0.075 UG/KG, 1 IN 1 MIN), INTRAVENOUS DRIP
     Route: 041
  2. LETAIRIS (AMBRISENTAN) (TABLETS) [Concomitant]
     Indication: PULMONARY ARTERIAL HYPERTENSION
  3. COUMADIN (WARFARIN SODIUM( UNKNOWN) [Concomitant]

REACTIONS (3)
  - Death [None]
  - Pulmonary arterial hypertension [None]
  - Disease progression [None]
